FAERS Safety Report 4284045-0 (Version None)
Quarter: 2004Q1

REPORT INFORMATION
  Report Type: 
  Country: None (occurrence: None)
  Receive Date: 20040202
  Receipt Date: 20040202
  Transmission Date: 20041129
  Serious: Yes (Other)
  Sender: FDA-Public Use
  Company Number: None

PATIENT
  Age: 42 Year
  Sex: Female
  Weight: 58.2872 kg

DRUGS (1)
  1. ALDARA [Suspect]
     Indication: ACTINIC KERATOSIS
     Dosage: APPLICATION HS 3X/WK TOPICAL
     Route: 061
     Dates: start: 20031228, end: 20040106

REACTIONS (11)
  - APPLICATION SITE DERMATITIS [None]
  - APPLICATION SITE ERYTHEMA [None]
  - ARTHRALGIA [None]
  - DERMATITIS [None]
  - HEADACHE [None]
  - INDURATION [None]
  - INFECTION [None]
  - MALAISE [None]
  - MYALGIA [None]
  - SLEEP DISORDER [None]
  - TENDERNESS [None]
